FAERS Safety Report 6554261-3 (Version None)
Quarter: 2010Q1

REPORT INFORMATION
  Report Type: 
  Country: None (occurrence: None)
  Receive Date: 20100125
  Receipt Date: 20100125
  Transmission Date: 20100710
  Serious: No
  Sender: FDA-Public Use
  Company Number: None

PATIENT
  Age: 77 Year
  Sex: Female
  Weight: 61.2356 kg

DRUGS (8)
  1. RECLAST [Suspect]
     Indication: OSTEOPOROSIS
     Dates: start: 20100121, end: 20100121
  2. ATENOLOL [Concomitant]
  3. HYDROCHLOROTHIAZIDE [Concomitant]
  4. LISINOPRIL [Concomitant]
  5. METFORMIN [Concomitant]
  6. MULTI-VITAMIN [Concomitant]
  7. VITD [Concomitant]
  8. CALCIUM SUPPLEMENT [Concomitant]

REACTIONS (3)
  - CHILLS [None]
  - MYALGIA [None]
  - PAINFUL RESPIRATION [None]
